FAERS Safety Report 9016722 (Version 2)
Quarter: 2013Q1

REPORT INFORMATION
  Report Type: Report from Study
  Country: US (occurrence: US)
  Receive Date: 20130116
  Receipt Date: 20130131
  Transmission Date: 20140127
  Serious: Yes (Other)
  Sender: FDA-Public Use
  Company Number: US-BAYER-2013-000056

PATIENT
  Age: 86 Year
  Sex: Female

DRUGS (2)
  1. STIVARGA [Suspect]
     Indication: RECTOSIGMOID CANCER
     Dosage: 80 MG, QD
     Route: 048
     Dates: start: 20121223, end: 20130103
  2. STIVARGA [Suspect]
     Indication: RECTOSIGMOID CANCER
     Dosage: 1 TABLET DAILY
     Dates: start: 20130108

REACTIONS (5)
  - Abasia [Recovering/Resolving]
  - Dysphonia [Not Recovered/Not Resolved]
  - Local swelling [Not Recovered/Not Resolved]
  - Blood pressure increased [Recovering/Resolving]
  - Blister [Recovering/Resolving]
